FAERS Safety Report 4659714-0 (Version None)
Quarter: 2005Q2

REPORT INFORMATION
  Report Type: 
  Country: None (occurrence: None)
  Receive Date: 20050413
  Receipt Date: 20040220
  Transmission Date: 20051028
  Serious: Yes (Hospitalization)
  Sender: FDA-Public Use
  Company Number: 2004-BP-01367BP

PATIENT

DRUGS (2)
  1. MOBIC [Suspect]
     Dosage: 15 MG (7.5 MG, 1 BID), PO
     Route: 048
  2. PRILOSEC [Concomitant]

REACTIONS (1)
  - GASTROINTESTINAL HAEMORRHAGE [None]
